FAERS Safety Report 21131023 (Version 1)
Quarter: 2022Q3

REPORT INFORMATION
  Report Type: Spontaneous
  Country: US (occurrence: None)
  Receive Date: 20220725
  Receipt Date: 20220725
  Transmission Date: 20221027
  Serious: Yes (Other)
  Sender: FDA-Public Use
  Company Number: None

PATIENT
  Age: 68 Year
  Sex: Female
  Weight: 47.25 kg

DRUGS (9)
  1. PAXLOVID [Suspect]
     Active Substance: NIRMATRELVIR\RITONAVIR
     Indication: COVID-19
     Dosage: OTHER QUANTITY : 1 TABLET(S);?FREQUENCY : TWICE A DAY;?
     Route: 048
     Dates: start: 20220722
  2. LEXAPRO [Concomitant]
     Active Substance: ESCITALOPRAM OXALATE
  3. PANTOPRAZOLE [Concomitant]
     Active Substance: PANTOPRAZOLE
  4. ZOLPIDEM [Concomitant]
     Active Substance: ZOLPIDEM TARTRATE
  5. CALCIUM [Concomitant]
     Active Substance: CALCIUM
  6. IRON [Concomitant]
  7. FISH OIL [Concomitant]
     Active Substance: FISH OIL
  8. Occasional Tylenol [Concomitant]
  9. very small dose of Excedrin [Concomitant]

REACTIONS (4)
  - Dizziness [None]
  - Fall [None]
  - Paralysis [None]
  - Diarrhoea [None]

NARRATIVE: CASE EVENT DATE: 20220722
